FAERS Safety Report 10079776 (Version 1)
Quarter: 2014Q2

REPORT INFORMATION
  Report Type: Spontaneous
  Country: JP (occurrence: JP)
  Receive Date: 20140415
  Receipt Date: 20140415
  Transmission Date: 20141212
  Serious: Yes (Hospitalization)
  Sender: FDA-Public Use
  Company Number: JP-GLAXOSMITHKLINE-B0969142A

PATIENT
  Age: 61 Year
  Sex: Female

DRUGS (19)
  1. LAMICTAL [Suspect]
     Indication: BIPOLAR DISORDER RELAPSE PROPHYLAXIS
     Dosage: 25MG PER DAY
     Route: 048
     Dates: start: 20130927, end: 20131010
  2. LAMICTAL [Suspect]
     Indication: BIPOLAR DISORDER RELAPSE PROPHYLAXIS
     Dosage: 25MG TWICE PER DAY
     Route: 048
     Dates: start: 20131011, end: 20131024
  3. LAMICTAL [Suspect]
     Indication: BIPOLAR DISORDER RELAPSE PROPHYLAXIS
     Dosage: 50MG TWICE PER DAY
     Route: 048
     Dates: start: 20131025, end: 20131107
  4. LAMICTAL [Suspect]
     Indication: BIPOLAR DISORDER RELAPSE PROPHYLAXIS
     Dosage: 100MG TWICE PER DAY
     Route: 048
     Dates: start: 20131108, end: 20131121
  5. LAMICTAL [Suspect]
     Indication: BIPOLAR DISORDER RELAPSE PROPHYLAXIS
     Dosage: 150MG TWICE PER DAY
     Route: 048
     Dates: start: 20131122, end: 20131227
  6. LANDSEN [Concomitant]
     Indication: BIPOLAR DISORDER
     Dosage: .5MG TWICE PER DAY
     Route: 048
     Dates: start: 20090619, end: 20131226
  7. ZOLPIDEM TARTRATE [Concomitant]
     Indication: BIPOLAR DISORDER
     Dosage: .5MG PER DAY
     Route: 048
     Dates: end: 20131226
  8. NITRAZEPAM [Concomitant]
     Indication: BIPOLAR DISORDER
     Dosage: 10MG PER DAY
     Route: 048
     Dates: start: 20090619, end: 20131226
  9. ETIZOLAM [Concomitant]
     Indication: BIPOLAR DISORDER
     Dosage: 1MG PER DAY
     Route: 048
     Dates: start: 20090619, end: 20131226
  10. ERIMIN [Concomitant]
     Indication: BIPOLAR DISORDER
     Dosage: 5MG PER DAY
     Route: 048
     Dates: start: 20100604, end: 20131212
  11. CALFINA [Concomitant]
     Indication: OSTEOPOROSIS
     Dosage: .5MG PER DAY
     Route: 048
     Dates: start: 20090724, end: 20131226
  12. SENNARIDE [Concomitant]
     Indication: CONSTIPATION
     Dosage: 24MG PER DAY
     Route: 048
     Dates: start: 20090220, end: 20131226
  13. AKIRIDEN [Concomitant]
     Indication: PARKINSONISM
     Route: 048
     Dates: start: 20100212, end: 20130731
  14. AKIRIDEN [Concomitant]
     Indication: PARKINSONISM
     Dosage: 2MG THREE TIMES PER DAY
     Route: 048
     Dates: start: 20130801, end: 20131226
  15. ABILIFY [Concomitant]
     Indication: BIPOLAR DISORDER
     Dosage: 6MG PER DAY
     Route: 048
     Dates: start: 20090501, end: 20130905
  16. QUETIAPINE [Concomitant]
     Indication: BIPOLAR DISORDER
     Dosage: 100MG PER DAY
     Route: 048
     Dates: start: 20130830, end: 20130905
  17. QUETIAPINE [Concomitant]
     Indication: BIPOLAR DISORDER
     Dosage: 200MG PER DAY
     Route: 048
     Dates: start: 20130906, end: 20131107
  18. QUETIAPINE [Concomitant]
     Indication: BIPOLAR DISORDER
     Dosage: 100MG PER DAY
     Route: 048
     Dates: start: 20131108, end: 20131219
  19. QUETIAPINE [Concomitant]
     Indication: BIPOLAR DISORDER
     Dosage: 50MG PER DAY
     Route: 048
     Dates: start: 20131220, end: 20131226

REACTIONS (6)
  - Delirium [Recovered/Resolved]
  - Dizziness [Recovering/Resolving]
  - Memory impairment [Recovering/Resolving]
  - Memory impairment [Recovering/Resolving]
  - Fall [Recovering/Resolving]
  - Speech disorder [Recovering/Resolving]
